FAERS Safety Report 4467648-X (Version None)
Quarter: 2004Q4

REPORT INFORMATION
  Report Type: 
  Country: None (occurrence: None)
  Receive Date: 20041001
  Receipt Date: 20040923
  Transmission Date: 20050328
  Serious: Yes (Other)
  Sender: FDA-Public Use
  Company Number: 2004-09-1527

PATIENT
  Age: 45 Year
  Sex: Female

DRUGS (7)
  1. VIRAFERONPEG [Suspect]
     Indication: HEPATITIS C
     Dosage: SEE IMAGE
  2. REBETOL [Suspect]
     Indication: HEPATITIS C
     Dosage: SEE IMAGE
  3. REBETOL [Suspect]
     Indication: HEPATITIS C
     Dosage: SEE IMAGE
  4. REBETOL [Suspect]
     Indication: HEPATITIS C
     Dosage: SEE IMAGE
  5. VIRAFERONPEG [Suspect]
     Indication: HEPATITIS C
     Dosage: SEE IMAGE
  6. VIRAFERONPEG [Suspect]
     Indication: HEPATITIS C
     Dosage: SEE IMAGE
  7. VIRAFERONPEG [Suspect]
     Indication: HEPATITIS C
     Dosage: SEE IMAGE

REACTIONS (5)
  - ACCOMMODATION DISORDER [None]
  - EXCITABILITY [None]
  - EYE PAIN [None]
  - GINGIVAL DISORDER [None]
  - PAPILLOMA [None]
